FAERS Safety Report 8365822-3 (Version None)
Quarter: 2012Q2

REPORT INFORMATION
  Report Type: 
  Country: None (occurrence: None)
  Receive Date: 20120517
  Receipt Date: 20120509
  Transmission Date: 20120825
  Serious: Yes (Hospitalization, Other)
  Sender: FDA-Public Use
  Company Number: FR-BRISTOL-MYERS SQUIBB COMPANY-16460602

PATIENT
  Age: 32 Year
  Sex: Female

DRUGS (4)
  1. ABILIFY [Suspect]
     Indication: PSYCHOTIC DISORDER
     Route: 048
  2. RISPERDAL [Concomitant]
  3. XANAX [Suspect]
     Dates: start: 20090101
  4. IXEL [Suspect]
     Dates: start: 20090101

REACTIONS (2)
  - INFECTION [None]
  - DIABETES MELLITUS [None]
